FAERS Safety Report 4779865-X (Version None)
Quarter: 2005Q3

REPORT INFORMATION
  Report Type: 
  Country: None (occurrence: None)
  Receive Date: 20050914
  Receipt Date: 20050509
  Transmission Date: 20060218
  Serious: Yes (Hospitalization)
  Sender: FDA-Public Use
  Company Number: 163-20785-04090141

PATIENT
  Age: 66 Year
  Sex: Male
  Weight: 104.5 kg

DRUGS (35)
  1. THALOMID [Suspect]
     Indication: MULTIPLE MYELOMA
     Dosage: ORAL
     Route: 048
     Dates: start: 20040522, end: 20040525
  2. THALOMID [Suspect]
     Indication: MULTIPLE MYELOMA
     Dosage: ORAL
     Route: 048
     Dates: start: 20040620, end: 20040623
  3. MELPHALAN (MELPHALAN) [Suspect]
     Indication: MULTIPLE MYELOMA
     Dosage: 390 MG, DAILY, INTRAVENOUS; 140 MG/M2, DAILY, INTRAVENOUS
     Route: 042
     Dates: start: 20040722, end: 20040722
  4. MELPHALAN (MELPHALAN) [Suspect]
     Indication: MULTIPLE MYELOMA
     Dosage: 390 MG, DAILY, INTRAVENOUS; 140 MG/M2, DAILY, INTRAVENOUS
     Route: 042
  5. BORTEZOMIB (BORTEZOMIB) [Suspect]
     Indication: MULTIPLE MYELOMA
     Dosage: DAYS 1, 4, 8, 11
     Dates: start: 20040519, end: 20040529
  6. BORTEZOMIB (BORTEZOMIB) [Suspect]
     Indication: MULTIPLE MYELOMA
     Dosage: DAYS 1, 4, 8, 11
     Dates: start: 20040617, end: 20040627
  7. DEXAMETHASONE [Suspect]
     Indication: MULTIPLE MYELOMA
     Dates: start: 20040522, end: 20040525
  8. DEXAMETHASONE [Suspect]
     Indication: MULTIPLE MYELOMA
     Dates: start: 20040620, end: 20040623
  9. CISPLATIN [Suspect]
     Indication: MULTIPLE MYELOMA
     Dates: start: 20040522, end: 20040525
  10. CISPLATIN [Suspect]
     Indication: MULTIPLE MYELOMA
     Dates: start: 20040620, end: 20040623
  11. ADRIAMYCIN PFS [Suspect]
     Indication: MULTIPLE MYELOMA
     Dates: start: 20040522, end: 20040525
  12. ADRIAMYCIN PFS [Suspect]
     Indication: MULTIPLE MYELOMA
     Dates: start: 20040620, end: 20040623
  13. CYCLOPHOSPHAMIDE [Suspect]
     Indication: MULTIPLE MYELOMA
     Dates: start: 20040522, end: 20040525
  14. CYCLOPHOSPHAMIDE [Suspect]
     Indication: MULTIPLE MYELOMA
     Dates: start: 20040620, end: 20040623
  15. ETOPOSIDE [Suspect]
     Indication: MULTIPLE MYELOMA
     Dates: start: 20040522, end: 20040525
  16. ETOPOSIDE [Suspect]
     Indication: MULTIPLE MYELOMA
     Dates: start: 20040620, end: 20040623
  17. ATIVAN [Concomitant]
  18. OXYCONTIN [Concomitant]
  19. CEFEPIME [Concomitant]
  20. TOBRAMYCIN [Concomitant]
  21. VANCOMYCIN [Concomitant]
  22. ACYCLOVIR [Concomitant]
  23. DIFLUCAN [Concomitant]
  24. PROTONIX [Concomitant]
  25. FOLIC ACID [Concomitant]
  26. PROCRIT [Concomitant]
  27. VALSARTAN [Concomitant]
  28. LOVASTATIN [Concomitant]
  29. MULTI-VITAMINS [Concomitant]
  30. REGLAN [Concomitant]
  31. ZOFRAN [Concomitant]
  32. AMBIEN [Concomitant]
  33. AREDIA [Concomitant]
  34. TEQUIN [Concomitant]
  35. ZANTAC [Concomitant]

REACTIONS (14)
  - ASTHENIA [None]
  - BACTERAEMIA [None]
  - DEHYDRATION [None]
  - ENTEROCOCCAL INFECTION [None]
  - ENTEROCOCCAL SEPSIS [None]
  - FEBRILE NEUTROPENIA [None]
  - GASTROINTESTINAL HYPOMOTILITY [None]
  - HYPOTENSION [None]
  - ISCHAEMIC HEPATITIS [None]
  - MUCOSAL INFLAMMATION [None]
  - OVERDOSE [None]
  - PNEUMONIA [None]
  - RENAL TUBULAR NECROSIS [None]
  - STAPHYLOCOCCAL INFECTION [None]
